FAERS Safety Report 11869908 (Version 2)
Quarter: 2016Q4

REPORT INFORMATION
  Report Type: Report from Study
  Country: US (occurrence: US)
  Receive Date: 20151228
  Receipt Date: 20161108
  Transmission Date: 20170206
  Serious: Yes (Hospitalization)
  Sender: FDA-Public Use
  Company Number: US-BEH-2015057103

PATIENT
  Age: 56 Year
  Sex: Female

DRUGS (19)
  1. ZEMAIRA [Suspect]
     Active Substance: .ALPHA.1-PROTEINASE INHIBITOR HUMAN
     Indication: ALPHA-1 ANTI-TRYPSIN DEFICIENCY
     Dosage: 60 MG, QW
     Route: 042
     Dates: start: 20131206
  2. SODIUM CHLORIDE. [Concomitant]
     Active Substance: SODIUM CHLORIDE
  3. LMX                                /00033401/ [Concomitant]
  4. NALTREXONE [Concomitant]
     Active Substance: NALTREXONE
  5. ZANTAC [Concomitant]
     Active Substance: RANITIDINE HYDROCHLORIDE
  6. HEPARIN [Concomitant]
     Active Substance: HEPARIN SODIUM
  7. PROTONIX [Concomitant]
     Active Substance: PANTOPRAZOLE SODIUM
  8. ZEMAIRA [Suspect]
     Active Substance: .ALPHA.1-PROTEINASE INHIBITOR HUMAN
     Dosage: 60 MG/KG, UNK
     Route: 042
  9. EPIPEN [Concomitant]
     Active Substance: EPINEPHRINE
  10. CALCIUM MAGNESIUM                  /00591201/ [Concomitant]
  11. GAMUNEX [Concomitant]
     Active Substance: HUMAN IMMUNOGLOBULIN G
  12. ZEMAIRA [Suspect]
     Active Substance: .ALPHA.1-PROTEINASE INHIBITOR HUMAN
     Dosage: 60 MG/DL, UNK
     Route: 042
  13. IBUPROFEN. [Concomitant]
     Active Substance: IBUPROFEN
  14. DIPHENHYDRAMINE. [Concomitant]
     Active Substance: DIPHENHYDRAMINE
  15. COLACE [Concomitant]
     Active Substance: DOCUSATE SODIUM
  16. ACETAMINOPHEN. [Concomitant]
     Active Substance: ACETAMINOPHEN
  17. DEXTROSE. [Concomitant]
     Active Substance: DEXTROSE
  18. MULTIVITAMIN                       /00097801/ [Concomitant]
     Active Substance: VITAMINS
  19. ZYRTEC [Concomitant]
     Active Substance: CETIRIZINE HYDROCHLORIDE

REACTIONS (8)
  - Allergy to chemicals [Recovered/Resolved]
  - Respiratory disorder [Recovered/Resolved]
  - Respiratory disorder [Recovered/Resolved]
  - Allergy to chemicals [Recovered/Resolved]
  - Allergy to chemicals [Recovered/Resolved]
  - Allergy to chemicals [Recovered/Resolved]
  - Respiratory disorder [Recovered/Resolved]
  - Respiratory disorder [Recovered/Resolved]

NARRATIVE: CASE EVENT DATE: 2013
